FAERS Safety Report 4970091-8 (Version None)
Quarter: 2006Q2

REPORT INFORMATION
  Report Type: 
  Country: None (occurrence: None)
  Receive Date: 20060412
  Receipt Date: 20060329
  Transmission Date: 20061013
  Serious: Yes (Hospitalization)
  Sender: FDA-Public Use
  Company Number: PHEH2006US04165

PATIENT
  Age: 74 Year
  Sex: Male
  Weight: 57.142 kg

DRUGS (11)
  1. EXJADE [Suspect]
     Indication: HAEMOSIDEROSIS
     Dosage: 1250 MG, QD
     Dates: start: 20060201
  2. CATAPRES /USA/ [Concomitant]
     Indication: HYPERTENSION
     Dosage: 0.2/24HRS/WEEKLY
     Route: 062
  3. HYZAAR [Concomitant]
     Indication: HYPERTENSION
     Dosage: 10/25 QD
     Route: 048
  4. LISINOPRIL [Concomitant]
     Indication: HYPERTENSION
     Dosage: 20 MG, QD
  5. COREG [Concomitant]
     Indication: CARDIAC FAILURE CONGESTIVE
     Dosage: 6.25 MG, BID
     Route: 048
  6. PRILOSEC [Concomitant]
     Indication: GASTROOESOPHAGEAL REFLUX DISEASE
     Dosage: 20 MG, QD
     Route: 048
  7. CHOLESTEROL- AND TRIGLYCERIDE REDUCERS [Concomitant]
     Indication: BLOOD CHOLESTEROL INCREASED
     Dosage: 75 MG, QD
     Route: 048
  8. ASPIRIN [Concomitant]
     Indication: PROPHYLAXIS
     Dosage: 81 MG, QD
     Route: 048
  9. ALBUTEROL [Concomitant]
     Indication: CHRONIC OBSTRUCTIVE PULMONARY DISEASE
     Dosage: 1-2 PUFFS QD
  10. CLONIDINE [Concomitant]
     Indication: PAIN
     Dosage: 0.1 MG, PRN
     Route: 048
  11. ATIVAN [Concomitant]
     Indication: ANXIETY
     Dosage: 0.1-0.5MG 1-2 TABS QD
     Route: 048

REACTIONS (9)
  - BRONCHITIS ACUTE [None]
  - CHRONIC OBSTRUCTIVE PULMONARY DISEASE [None]
  - COUGH [None]
  - DIARRHOEA [None]
  - DYSPNOEA [None]
  - HAEMOGLOBIN DECREASED [None]
  - HYPOXIA [None]
  - RHONCHI [None]
  - WHEEZING [None]
